FAERS Safety Report 10994306 (Version 1)
Quarter: 2015Q2

REPORT INFORMATION
  Report Type: Spontaneous
  Country: US (occurrence: None)
  Receive Date: 20150403
  Receipt Date: 20150403
  Transmission Date: 20150821
  Serious: Yes (Other)
  Sender: FDA-Public Use
  Company Number: 2015COV00068

PATIENT
  Age: 58 Year
  Sex: Female

DRUGS (8)
  1. ELIQUIS [Concomitant]
     Active Substance: APIXABAN
  2. OMEPRAZOLE. [Concomitant]
     Active Substance: OMEPRAZOLE
  3. COLAE (DOCUSATE SODIUM) [Concomitant]
  4. HYDROXYCHLOROQUINE (HYDROXYCHLOROQUINE) [Suspect]
     Active Substance: HYDROXYCHLOROQUINE
     Indication: SERONEGATIVE ARTHRITIS
     Route: 048
     Dates: start: 2010, end: 201409
  5. LYRICA [Concomitant]
     Active Substance: PREGABALIN
  6. MIRALAX (MACROGOL) [Concomitant]
  7. PROPANOLOL [Concomitant]
     Active Substance: PROPRANOLOL HYDROCHLORIDE
  8. CRESTOR [Concomitant]
     Active Substance: ROSUVASTATIN CALCIUM

REACTIONS (6)
  - Retching [None]
  - Colectomy [None]
  - Cold sweat [None]
  - Nausea [None]
  - Inflammatory marker increased [None]
  - Intestinal mass [None]

NARRATIVE: CASE EVENT DATE: 2012
